FAERS Safety Report 5086518-X (Version None)
Quarter: 2006Q3

REPORT INFORMATION
  Report Type: 
  Country: None (occurrence: None)
  Receive Date: 20060823
  Receipt Date: 20060812
  Transmission Date: 20061208
  Serious: Yes (Hospitalization)
  Sender: FDA-Public Use
  Company Number: PHBS2006BR12368

PATIENT
  Age: 7 Year
  Sex: Male
  Weight: 30 kg

DRUGS (1)
  1. ZADITEN [Suspect]
     Indication: EYE INFLAMMATION
     Dosage: 1 DRP EACH EYE/BID
     Dates: start: 20060809, end: 20060812

REACTIONS (5)
  - BLOOD PRESSURE INCREASED [None]
  - HEADACHE [None]
  - SWELLING [None]
  - SWELLING FACE [None]
  - TREMOR [None]
